FAERS Safety Report 9222029 (Version 3)
Quarter: 2013Q2

REPORT INFORMATION
  Report Type: Spontaneous
  Country: US (occurrence: US)
  Receive Date: 20130410
  Receipt Date: 20130502
  Transmission Date: 20140414
  Serious: No
  Sender: FDA-Public Use
  Company Number: US-PFIZER INC-2013085385

PATIENT
  Age: 52 Year
  Sex: Male
  Weight: 72.56 kg

DRUGS (9)
  1. LYRICA [Suspect]
     Indication: NEURALGIA
     Dosage: 75 MG, 2X/DAY
     Route: 048
     Dates: start: 2011
  2. DOXAZOSIN [Concomitant]
     Dosage: UNK
  3. TYLENOL [Concomitant]
     Dosage: 650 MG, AS NEEDED
  4. TYLENOL [Concomitant]
     Dosage: UNK
  5. RANITIDINE [Concomitant]
     Dosage: UNK
  6. ZANTAC [Concomitant]
     Dosage: 300 MG, 2X/DAY
  7. PAXIL [Concomitant]
     Dosage: 20 MG, 1X/DAY
  8. PRAVACHOL [Concomitant]
     Dosage: 10 MG, 1X/DAY
  9. CARDURA [Concomitant]
     Dosage: 8 MG, 1X/DAY

REACTIONS (1)
  - Pain [Unknown]
